FAERS Safety Report 18781942 (Version 1)
Quarter: 2021Q1

REPORT INFORMATION
  Report Type: Spontaneous
  Country: US (occurrence: US)
  Receive Date: 20210125
  Receipt Date: 20210125
  Transmission Date: 20210419
  Serious: Yes (Hospitalization)
  Sender: FDA-Public Use
  Company Number: None

PATIENT
  Age: 55 Year
  Sex: Male
  Weight: 167.8 kg

DRUGS (5)
  1. SODIUM CHLORIDE 0.9% 1L BOLUS [Concomitant]
     Dates: start: 20201229, end: 20201229
  2. KETOROLAC 15MG IV AT 0055 [Concomitant]
     Dates: start: 20201230, end: 20201230
  3. BAMLANIVIMAB 700MG IV ONCE [Concomitant]
     Dates: start: 20201230, end: 20201230
  4. BAMLANIVIMAB. [Suspect]
     Active Substance: BAMLANIVIMAB
     Indication: COVID-19
     Dosage: ?          OTHER FREQUENCY:ONCE;?
     Route: 042
     Dates: start: 20201229, end: 20201229
  5. ISOVUE 370 75ML AND 65ML FOR CT CONTRAST [Concomitant]
     Dates: start: 20201230, end: 20201230

REACTIONS (4)
  - Dizziness [None]
  - Malaise [None]
  - Nausea [None]
  - Chest pain [None]

NARRATIVE: CASE EVENT DATE: 20201229
